FAERS Safety Report 25923209 (Version 1)
Quarter: 2025Q4

REPORT INFORMATION
  Report Type: Spontaneous
  Country: US (occurrence: US)
  Receive Date: 20251015
  Receipt Date: 20251015
  Transmission Date: 20260117
  Serious: Yes (Hospitalization, Other)
  Sender: AMGEN
  Company Number: US-AMGEN-USASP2025201592

PATIENT
  Age: 64 Year
  Sex: Male

DRUGS (1)
  1. BEVACIZUMAB [Suspect]
     Active Substance: BEVACIZUMAB
     Indication: Glaucoma
     Dosage: UNK, (TWO INTRAVITREAL INJECTIONS)

REACTIONS (7)
  - Chronic lymphocytic leukaemia recurrent [Recovering/Resolving]
  - Meningioma [Unknown]
  - Blindness [Unknown]
  - Conjunctival oedema [Recovered/Resolved]
  - Conjunctival hyperaemia [Unknown]
  - Drug ineffective for unapproved indication [Unknown]
  - Off label use [Unknown]
